FAERS Safety Report 14759680 (Version 2)
Quarter: 2018Q2

REPORT INFORMATION
  Report Type: Spontaneous
  Country: JP (occurrence: JP)
  Receive Date: 20180413
  Receipt Date: 20180419
  Transmission Date: 20180711
  Serious: Yes (Hospitalization)
  Sender: FDA-Public Use
  Company Number: JP-TEVA-2018-JP-882003

PATIENT
  Age: 69 Year
  Sex: Male

DRUGS (2)
  1. DOCETAXEL. [Suspect]
     Active Substance: DOCETAXEL
     Indication: NON-SMALL CELL LUNG CANCER
     Dosage: EIGHT COURSES OF CHEMOTHERAPY
     Route: 065
  2. RAMUCIRUMAB [Concomitant]
     Active Substance: RAMUCIRUMAB
     Indication: NON-SMALL CELL LUNG CANCER
     Dosage: EIGHT COURSES OF CHEMOTHERAPY
     Route: 065

REACTIONS (6)
  - Paronychia [Unknown]
  - Streptococcal infection [Unknown]
  - Klebsiella infection [Unknown]
  - Febrile neutropenia [Recovered/Resolved]
  - Abscess limb [Recovered/Resolved]
  - Onycholysis [Unknown]
